FAERS Safety Report 17184160 (Version 1)
Quarter: 2019Q4

REPORT INFORMATION
  Report Type: Spontaneous
  Country: US (occurrence: US)
  Receive Date: 20191126
  Receipt Date: 20191126
  Transmission Date: 20200122
  Serious: Yes (Life-Threatening, Hospitalization, Disabling)
  Sender: FDA-Public Use
  Company Number: None

PATIENT
  Age: 68 Year
  Sex: Male
  Weight: 69.85 kg

DRUGS (9)
  1. SPIRONOLACTONE 25 MG [Suspect]
     Active Substance: SPIRONOLACTONE
     Route: 048
  2. AMLODIPINE BESYLATE. [Suspect]
     Active Substance: AMLODIPINE BESYLATE
     Indication: HYPERTENSION
     Route: 048
     Dates: start: 201708
  3. ATORVASTATIN 20 MG [Suspect]
     Active Substance: ATORVASTATIN
     Route: 048
  4. AMLODIPINE BESYLATE. [Suspect]
     Active Substance: AMLODIPINE BESYLATE
     Indication: DIABETES MELLITUS
     Route: 048
     Dates: start: 201708
  5. AMLODIPINE BESYLATE. [Suspect]
     Active Substance: AMLODIPINE BESYLATE
     Indication: BLOOD CHOLESTEROL
     Route: 048
     Dates: start: 201708
  6. AMLODIPINE BESYLATE. [Suspect]
     Active Substance: AMLODIPINE BESYLATE
     Indication: BLOOD INSULIN
     Route: 048
     Dates: start: 201708
  7. VITAMIN D3 [Concomitant]
     Active Substance: CHOLECALCIFEROL
     Route: 048
  8. LISINOPRIL 10 MG [Suspect]
     Active Substance: LISINOPRIL
     Route: 048
  9. FAMOTIDINE 40 MG [Suspect]
     Active Substance: FAMOTIDINE
     Route: 048

REACTIONS (6)
  - Faeces discoloured [None]
  - Urinary tract disorder [None]
  - Gastrooesophageal reflux disease [None]
  - Burning sensation [None]
  - Tongue discolouration [None]
  - Dysuria [None]

NARRATIVE: CASE EVENT DATE: 201705
